FAERS Safety Report 4783784-2 (Version None)
Quarter: 2005Q3

REPORT INFORMATION
  Report Type: 
  Country: None (occurrence: None)
  Receive Date: 20050929
  Receipt Date: 20050526
  Transmission Date: 20060218
  Serious: Yes (Hospitalization, Disabling, Other)
  Sender: FDA-Public Use
  Company Number: US-MERCK-0505USA03217

PATIENT
  Age: 68 Year
  Sex: Female
  Weight: 61 kg

DRUGS (1)
  1. VIOXX [Suspect]
     Route: 048
     Dates: start: 20010101, end: 20030901

REACTIONS (41)
  - ABDOMINAL PAIN [None]
  - ADVERSE DRUG REACTION [None]
  - ANAEMIA [None]
  - ANGINA UNSTABLE [None]
  - ANHEDONIA [None]
  - ARACHNOID CYST [None]
  - ATHEROSCLEROSIS [None]
  - ATRIAL FIBRILLATION [None]
  - BACK PAIN [None]
  - BACTERAEMIA [None]
  - BIPOLAR DISORDER [None]
  - CEREBROVASCULAR ACCIDENT [None]
  - COMPRESSION FRACTURE [None]
  - DEPRESSION [None]
  - DYSKINESIA OESOPHAGEAL [None]
  - DYSPHAGIA [None]
  - FUNGAL INFECTION [None]
  - GASTRITIS ATROPHIC [None]
  - GASTROOESOPHAGEAL REFLUX DISEASE [None]
  - HAEMORRHOIDS [None]
  - HYPERTENSION [None]
  - HYPOACUSIS [None]
  - HYPOKALAEMIA [None]
  - LIVER FUNCTION TEST ABNORMAL [None]
  - MAJOR DEPRESSION [None]
  - MYOCARDIAL INFARCTION [None]
  - NERVOUS SYSTEM DISORDER [None]
  - OESOPHAGEAL STENOSIS [None]
  - OSTEOPOROSIS [None]
  - PANIC DISORDER [None]
  - PARKINSON'S DISEASE [None]
  - PNEUMONIA [None]
  - PYLORIC STENOSIS [None]
  - RECTAL POLYP [None]
  - RENAL FAILURE [None]
  - SCHIZOAFFECTIVE DISORDER [None]
  - SCOLIOSIS [None]
  - SICK SINUS SYNDROME [None]
  - SUICIDAL IDEATION [None]
  - SWELLING [None]
  - VENTRICULAR EXTRASYSTOLES [None]
